FAERS Safety Report 10150716 (Version 2)
Quarter: 2014Q2

REPORT INFORMATION
  Report Type: Spontaneous
  Country: US (occurrence: US)
  Receive Date: 20140502
  Receipt Date: 20140505
  Transmission Date: 20141212
  Serious: Yes (Other)
  Sender: FDA-Public Use
  Company Number: US-TAKEDA-2014TUS003445

PATIENT
  Sex: Female

DRUGS (1)
  1. BRINTELLIX [Suspect]
     Dosage: 20 MG, UNK
     Route: 048

REACTIONS (1)
  - Suicide attempt [Recovering/Resolving]
